FAERS Safety Report 12456926 (Version 1)
Quarter: 2016Q2

REPORT INFORMATION
  Report Type: Spontaneous
  Country: US (occurrence: US)
  Receive Date: 20160610
  Receipt Date: 20160610
  Transmission Date: 20160815
  Serious: Yes (Other)
  Sender: FDA-Public Use
  Company Number: US-SA-2016SA107981

PATIENT
  Age: 67 Year
  Sex: Female

DRUGS (3)
  1. APIDRA SOLOSTAR [Suspect]
     Active Substance: INSULIN GLULISINE
     Indication: TYPE 1 DIABETES MELLITUS
     Route: 065
  2. APIDRA [Suspect]
     Active Substance: INSULIN GLULISINE
     Indication: TYPE 1 DIABETES MELLITUS
     Route: 065
  3. SOLOSTAR [Concomitant]
     Active Substance: DEVICE

REACTIONS (5)
  - Neoplasm malignant [Unknown]
  - Product use issue [Unknown]
  - Blood glucose increased [Unknown]
  - Glycosylated haemoglobin increased [Recovering/Resolving]
  - Visual impairment [Recovering/Resolving]
